FAERS Safety Report 4970147-X (Version None)
Quarter: 2006Q2

REPORT INFORMATION
  Report Type: 
  Country: None (occurrence: None)
  Receive Date: 20060406
  Receipt Date: 20060324
  Transmission Date: 20061013
  Serious: Yes (Other)
  Sender: FDA-Public Use
  Company Number: 2006018676

PATIENT
  Sex: Female
  Weight: 89.3586 kg

DRUGS (4)
  1. DETROL LA [Suspect]
     Indication: POLLAKIURIA
     Dosage: 4 MG (4 MG, 1 IN 1 D), ORAL
     Route: 048
     Dates: start: 20031001
  2. MONTELUKAST [Concomitant]
  3. FLOVENT [Concomitant]
  4. SEREVENT [Concomitant]

REACTIONS (6)
  - ARTHRITIS [None]
  - BLINDNESS [None]
  - BLOOD CHOLESTEROL INCREASED [None]
  - DEPRESSION [None]
  - DRUG INEFFECTIVE [None]
  - MACULAR DEGENERATION [None]
